FAERS Safety Report 6571531-3 (Version None)
Quarter: 2010Q1

REPORT INFORMATION
  Report Type: 
  Country: None (occurrence: None)
  Receive Date: 20100205
  Receipt Date: 20100127
  Transmission Date: 20100710
  Serious: Yes (Other)
  Sender: FDA-Public Use
  Company Number: BR-JNJFOC-20100200561

PATIENT
  Sex: Female

DRUGS (1)
  1. TYLEX [Suspect]
     Indication: BACK PAIN
     Dosage: ACETAMINOPHEN 500MG AND CODEINE PHOSPHATE 30MG
     Route: 065

REACTIONS (4)
  - DRUG INEFFECTIVE [None]
  - HEADACHE [None]
  - PRODUCT COUNTERFEIT [None]
  - WRONG TECHNIQUE IN DRUG USAGE PROCESS [None]
